FAERS Safety Report 14186979 (Version 1)
Quarter: 2017Q4

REPORT INFORMATION
  Report Type: Spontaneous
  Country: US (occurrence: US)
  Receive Date: 20171113
  Receipt Date: 20171113
  Transmission Date: 20180321
  Serious: No
  Sender: FDA-Public Use
  Company Number: None

PATIENT
  Age: 49 Year
  Sex: Female
  Weight: 62.55 kg

DRUGS (2)
  1. LEVOTHYROXINE. [Concomitant]
     Active Substance: LEVOTHYROXINE
  2. TOPIRAMATE. [Suspect]
     Active Substance: TOPIRAMATE
     Indication: MIGRAINE
     Dosage: ?          QUANTITY:1 TABLET(S);?AT BEDTIME ORAL
     Route: 048
     Dates: start: 20170912, end: 20171105

REACTIONS (8)
  - Hypersensitivity [None]
  - Back pain [None]
  - Weight decreased [None]
  - Appetite disorder [None]
  - Abdominal pain upper [None]
  - Vomiting [None]
  - Pain [None]
  - Dysgeusia [None]

NARRATIVE: CASE EVENT DATE: 20171017
